FAERS Safety Report 8857579 (Version 2)
Quarter: 2012Q4

REPORT INFORMATION
  Report Type: 
  Country: US (occurrence: US)
  Receive Date: 20121024
  Receipt Date: 20121122
  Transmission Date: 20130627
  Serious: Yes (Other)
  Sender: FDA-Public Use
  Company Number: CHPA2012US021966

PATIENT
  Age: 69 Year
  Sex: Female

DRUGS (4)
  1. KERI UNKNOWN [Suspect]
     Indication: DRY SKIN
     Dosage: Unk, DAILY
     Route: 061
  2. EUCERIN CREME [Concomitant]
     Dosage: Unk, Unk
  3. WARFARIN [Concomitant]
     Dosage: 10 mg, QD
  4. AVEENO ANTI-ITCH                        /USA/ [Concomitant]
     Dosage: Unk, Unk

REACTIONS (3)
  - Cerebrovascular accident [Recovered/Resolved]
  - Atrial fibrillation [Recovered/Resolved]
  - Medication residue [Unknown]
